FAERS Safety Report 5030242-6 (Version None)
Quarter: 2006Q2

REPORT INFORMATION
  Report Type: 
  Country: None (occurrence: None)
  Receive Date: 20060620
  Receipt Date: 20060509
  Transmission Date: 20061013
  Serious: Yes (Hospitalization)
  Sender: FDA-Public Use
  Company Number: JP-ROCHE-447706

PATIENT
  Age: 41 Year
  Sex: Female
  Weight: 60 kg

DRUGS (3)
  1. PEGASYS [Suspect]
     Route: 058
     Dates: start: 20060407, end: 20060502
  2. LOXONIN [Concomitant]
     Dosage: REPORTED DOSE FORM: ORAL FORMULATION (NOT OTHERWISE SPECIFIED).
     Route: 048
  3. LAC-B [Concomitant]
     Dosage: DOSAGE ADJUSTED
     Route: 048
     Dates: start: 20060427

REACTIONS (5)
  - BLOOD CREATINE PHOSPHOKINASE INCREASED [None]
  - ELECTROENCEPHALOGRAM ABNORMAL [None]
  - EPILEPSY [None]
  - PYREXIA [None]
  - RESTLESSNESS [None]
